FAERS Safety Report 4451276-6 (Version None)
Quarter: 2004Q3

REPORT INFORMATION
  Report Type: 
  Country: None (occurrence: None)
  Receive Date: 20040915
  Receipt Date: 20040915
  Transmission Date: 20050211
  Serious: Yes (Death)
  Sender: FDA-Public Use
  Company Number: None

PATIENT
  Age: 21 Year
  Sex: Male
  Weight: 83.9154 kg

DRUGS (1)
  1. LEXAPRO [Suspect]
     Dates: start: 19990510, end: 20040619

REACTIONS (2)
  - COMPLETED SUICIDE [None]
  - MURDER [None]
